FAERS Safety Report 4519164-4 (Version None)
Quarter: 2004Q4

REPORT INFORMATION
  Report Type: 
  Country: None (occurrence: None)
  Receive Date: 20041201
  Receipt Date: 20041117
  Transmission Date: 20050328
  Serious: Yes (Life-Threatening, Hospitalization)
  Sender: FDA-Public Use
  Company Number: 2004PL000070

PATIENT
  Age: 22 Year
  Sex: Female

DRUGS (3)
  1. AZATHIOPRINE [Suspect]
     Indication: CROHN'S DISEASE
     Dosage: 75 MG; DAILY; ORAL
     Route: 048
  2. ASACOL [Concomitant]
  3. PREDNISOONE [Concomitant]

REACTIONS (11)
  - BLOOD POTASSIUM DECREASED [None]
  - CEREBRAL HAEMORRHAGE [None]
  - COMA [None]
  - DEPRESSED LEVEL OF CONSCIOUSNESS [None]
  - DIARRHOEA HAEMORRHAGIC [None]
  - ENCEPHALITIS HERPES [None]
  - EOSINOPHIL PERCENTAGE INCREASED [None]
  - HAEMOGLOBIN DECREASED [None]
  - HEADACHE [None]
  - LYMPHOCYTE PERCENTAGE DECREASED [None]
  - NECROSIS [None]
